FAERS Safety Report 12527499 (Version 3)
Quarter: 2016Q3

REPORT INFORMATION
  Report Type: Spontaneous
  Country: IT (occurrence: IT)
  Receive Date: 20160705
  Receipt Date: 20160729
  Transmission Date: 20161109
  Serious: Yes (Other)
  Sender: FDA-Public Use
  Company Number: IT-SA-2016SA120131

PATIENT
  Age: 37 Year
  Sex: Female

DRUGS (3)
  1. FERLIXIT [Suspect]
     Active Substance: SODIUM FERRIC GLUCONATE COMPLEX
     Indication: IRON DEFICIENCY ANAEMIA
     Dosage: FORM:SOLUTION FOR ORAL AND INTRAVENOUS USE
     Route: 042
     Dates: start: 20160623, end: 20160623
  2. MESALAZINE [Concomitant]
     Active Substance: MESALAMINE
     Dosage: DOSE/FREQUENCY: 2.4 GM (800MGX3 / TIMES DAILY)
     Route: 048
  3. KESTINE [Concomitant]
     Active Substance: EBASTINE

REACTIONS (4)
  - Gait disturbance [Unknown]
  - Myalgia [Unknown]
  - Urticaria [Unknown]
  - Infusion related reaction [Unknown]

NARRATIVE: CASE EVENT DATE: 20160623
